FAERS Safety Report 7628521-9 (Version None)
Quarter: 2011Q3

REPORT INFORMATION
  Report Type: 
  Country: None (occurrence: None)
  Receive Date: 20110722
  Receipt Date: 20110717
  Transmission Date: 20111222
  Serious: Yes (Other)
  Sender: FDA-Public Use
  Company Number: DE-GENZYME-FLUD-1001210

PATIENT
  Age: 9 Year
  Sex: Male

DRUGS (7)
  1. YTTRIUM (90 Y) [Suspect]
     Indication: STEM CELL TRANSPLANT
     Dosage: UNK
     Route: 042
  2. YTTRIUM (90 Y) [Suspect]
     Indication: ACUTE MYELOID LEUKAEMIA
  3. INDIUM (111 IN) [Suspect]
     Indication: ACUTE MYELOID LEUKAEMIA
  4. FLUDARA [Suspect]
     Indication: STEM CELL TRANSPLANT
     Dosage: 160 MG/M2, UNK
     Route: 065
  5. CYCLOSPORINE [Concomitant]
     Indication: PROPHYLAXIS AGAINST GRAFT VERSUS HOST DISEASE
     Dosage: UNK
     Route: 065
  6. FLUDARA [Suspect]
     Indication: ACUTE MYELOID LEUKAEMIA
  7. INDIUM (111 IN) [Suspect]
     Indication: STEM CELL TRANSPLANT
     Dosage: 71 +/- 28 MBQ
     Route: 042

REACTIONS (2)
  - CHRONIC GRAFT VERSUS HOST DISEASE [None]
  - ACUTE GRAFT VERSUS HOST DISEASE [None]
